FAERS Safety Report 7026242-7 (Version None)
Quarter: 2010Q4

REPORT INFORMATION
  Report Type: 
  Country: None (occurrence: None)
  Receive Date: 20101004
  Receipt Date: 20100923
  Transmission Date: 20110411
  Serious: No
  Sender: FDA-Public Use
  Company Number: US-JNJFOC-20100908310

PATIENT
  Sex: Female

DRUGS (2)
  1. UNSPECIFIED FENTANYL [Suspect]
     Indication: PAIN
     Route: 062
  2. SANDOZ FENTANYL TRANSDERMAL SYSTEM [Suspect]
     Indication: PAIN
     Dosage: 50 UG/HR EVERY 48 TO 72 HOURS
     Route: 062

REACTIONS (4)
  - DRUG DOSE OMISSION [None]
  - DRUG PRESCRIBING ERROR [None]
  - THERAPEUTIC RESPONSE DECREASED [None]
  - WITHDRAWAL SYNDROME [None]
